FAERS Safety Report 7941897-8 (Version None)
Quarter: 2011Q4

REPORT INFORMATION
  Report Type: 
  Country: None (occurrence: None)
  Receive Date: 20111128
  Receipt Date: 20111117
  Transmission Date: 20120403
  Serious: Yes (Other)
  Sender: FDA-Public Use
  Company Number: US-BAYER-200933631NA

PATIENT
  Age: 46 Year
  Sex: Female
  Weight: 64 kg

DRUGS (10)
  1. EPIPEN [Concomitant]
  2. CELEXA [Concomitant]
  3. YASMIN [Suspect]
     Indication: CONTRACEPTION
     Dosage: UNK
     Route: 048
     Dates: start: 20010813, end: 20061212
  4. METROGEL [Concomitant]
     Route: 061
  5. PROMETHAZINE VC W/CODEINE [CODEINE PHOS,PHENYLEPHR HCL,PROMETHAZ H [Concomitant]
  6. DIFLUCAN [Concomitant]
  7. PREDNISONE TAB [Concomitant]
  8. ALLEGRA [Concomitant]
  9. PATANOL [Concomitant]
  10. ZITHROMAX [Concomitant]

REACTIONS (15)
  - ABDOMINAL PAIN [None]
  - FEAR [None]
  - INJURY [None]
  - ALTERED VISUAL DEPTH PERCEPTION [None]
  - BLINDNESS UNILATERAL [None]
  - SCAR [None]
  - HYPERTENSION [None]
  - CHOLELITHIASIS [None]
  - INTRAOCULAR PRESSURE INCREASED [None]
  - PUPILS UNEQUAL [None]
  - RETINAL VEIN OCCLUSION [None]
  - VISUAL IMPAIRMENT [None]
  - GLAUCOMA [None]
  - EYE PAIN [None]
  - OCULAR HYPERAEMIA [None]
